FAERS Safety Report 16223002 (Version 1)
Quarter: 2019Q2

REPORT INFORMATION
  Report Type: Spontaneous
  Country: US (occurrence: US)
  Receive Date: 20190316
  Receipt Date: 20190316
  Transmission Date: 20190711
  Serious: Yes (Hospitalization)
  Sender: FDA-Public Use
  Company Number: None

PATIENT
  Age: 46 Year
  Sex: Female

DRUGS (1)
  1. WARFARIN [Suspect]
     Active Substance: WARFARIN
     Indication: MITRAL VALVE REPLACEMENT
     Dates: start: 20121009

REACTIONS (7)
  - Gastrointestinal haemorrhage [None]
  - Nausea [None]
  - Hypotension [None]
  - Vomiting [None]
  - Blood pressure systolic decreased [None]
  - Fatigue [None]
  - Dizziness [None]

NARRATIVE: CASE EVENT DATE: 20181223
